FAERS Safety Report 8171437-2 (Version None)
Quarter: 2012Q1

REPORT INFORMATION
  Report Type: 
  Country: None (occurrence: None)
  Receive Date: 20120228
  Receipt Date: 20120217
  Transmission Date: 20120608
  Serious: Yes (Life-Threatening, Hospitalization, Disabling)
  Sender: FDA-Public Use
  Company Number: CA-PFIZER INC-2012007324

PATIENT
  Age: 66 Year
  Sex: Male
  Weight: 70 kg

DRUGS (8)
  1. NEXIUM [Suspect]
     Dosage: 40 MG, 2X/DAY
     Dates: start: 20110101, end: 20110630
  2. PANTOPRAZOLE SODIUM [Suspect]
     Indication: BARRETT'S OESOPHAGUS
     Dosage: 40 MG, 2X/DAY
     Route: 048
     Dates: end: 20110408
  3. ASPIRIN [Concomitant]
     Dosage: 80 MG, UNK
     Route: 048
  4. BISOPROLOL [Concomitant]
  5. MONOCOR [Concomitant]
     Dosage: 5 MG, 1X/DAY
  6. NEXIUM [Suspect]
     Dosage: 40 MG, 2X/DAY
     Route: 048
     Dates: end: 20110208
  7. PERINDOPRIL ERBUMINE [Concomitant]
     Dosage: 4 MG, 1X/DAY
  8. NEXIUM [Suspect]
     Indication: BARRETT'S OESOPHAGUS
     Dosage: 40 MG, 1X/DAY
     Route: 048
     Dates: start: 20081120, end: 20100928

REACTIONS (4)
  - HYPOKALAEMIA [None]
  - HYPOMAGNESAEMIA [None]
  - BLOOD CREATINE PHOSPHOKINASE INCREASED [None]
  - HYPOCALCAEMIA [None]
